FAERS Safety Report 4369223-4 (Version None)
Quarter: 2004Q2

REPORT INFORMATION
  Report Type: 
  Country: None (occurrence: None)
  Receive Date: 20040603
  Receipt Date: 20031023
  Transmission Date: 20050107
  Serious: No
  Sender: FDA-Public Use
  Company Number: US-GLAXOSMITHKLINE-A0431429A

PATIENT
  Age: 46 Year
  Sex: Male

DRUGS (1)
  1. AUGMENTIN [Suspect]
     Indication: ACUTE SINUSITIS
     Route: 048
     Dates: start: 20031021

REACTIONS (1)
  - PAIN IN EXTREMITY [None]
